FAERS Safety Report 5303157-3 (Version None)
Quarter: 2007Q2

REPORT INFORMATION
  Report Type: 
  Country: None (occurrence: None)
  Receive Date: 20070420
  Receipt Date: 20070410
  Transmission Date: 20071010
  Serious: Yes (Death, Hospitalization, Other)
  Sender: FDA-Public Use
  Company Number: AU-GLAXOSMITHKLINE-B0466982A

PATIENT
  Age: 45 Year
  Sex: Female

DRUGS (1)
  1. PARACETAMOL [Suspect]
     Indication: ABDOMINAL PAIN
     Dosage: 1G FOUR TIMES PER DAY
     Route: 065

REACTIONS (13)
  - ABNORMAL BEHAVIOUR [None]
  - ACCIDENTAL POISONING [None]
  - ACUTE HEPATIC FAILURE [None]
  - CONFUSIONAL STATE [None]
  - DEPRESSED LEVEL OF CONSCIOUSNESS [None]
  - DRUG TOXICITY [None]
  - HAEMATURIA [None]
  - HEPATIC NECROSIS [None]
  - HEPATIC STEATOSIS [None]
  - METABOLIC ACIDOSIS [None]
  - MULTI-ORGAN FAILURE [None]
  - RENAL FAILURE [None]
  - SOMNOLENCE [None]
